FAERS Safety Report 7525281-7 (Version None)
Quarter: 2011Q2

REPORT INFORMATION
  Report Type: 
  Country: None (occurrence: None)
  Receive Date: 20110526
  Receipt Date: 20110513
  Transmission Date: 20111010
  Serious: Yes (Hospitalization)
  Sender: FDA-Public Use
  Company Number: DSJ-2010-19965

PATIENT
  Age: 61 Year
  Sex: Male

DRUGS (4)
  1. BENICAR HCT [Suspect]
     Indication: HYPERTENSION
     Dosage: 40/25 MG (1 IN 1 D), PER ORAL
     Route: 048
     Dates: start: 20071108
  2. METFORMIN HCL [Concomitant]
  3. ASPIRIN [Concomitant]
  4. GLICAZIDE [Concomitant]

REACTIONS (2)
  - POLLAKIURIA [None]
  - BLOOD GLUCOSE INCREASED [None]
